FAERS Safety Report 7182779-1 (Version None)
Quarter: 2010Q4

REPORT INFORMATION
  Report Type: 
  Country: None (occurrence: None)
  Receive Date: 20101221
  Receipt Date: 20100622
  Transmission Date: 20110411
  Serious: No
  Sender: FDA-Public Use
  Company Number: US-AMGEN-TCS412944

PATIENT

DRUGS (2)
  1. ENBREL [Suspect]
     Indication: RHEUMATOID ARTHRITIS
     Dosage: 50 MG, QWK
     Route: 058
  2. METHOTREXATE [Concomitant]
     Dosage: UNK UNK, UNK

REACTIONS (6)
  - ANAEMIA [None]
  - BACTERIAL INFECTION [None]
  - DRY THROAT [None]
  - INJECTION SITE ERYTHEMA [None]
  - LOWER RESPIRATORY TRACT INFECTION [None]
  - THROAT IRRITATION [None]
